FAERS Safety Report 5934526-6 (Version None)
Quarter: 2008Q4

REPORT INFORMATION
  Report Type: 
  Country: None (occurrence: None)
  Receive Date: 20081029
  Receipt Date: 20081027
  Transmission Date: 20090506
  Serious: Yes (Hospitalization, Other)
  Sender: FDA-Public Use
  Company Number: GB-WYE-G02442208

PATIENT
  Sex: Female

DRUGS (2)
  1. TORISEL [Suspect]
     Dosage: 1 DOSE EVERY 1 TOT
     Dates: start: 20081014
  2. WARFARIN SODIUM [Suspect]
     Indication: DEEP VEIN THROMBOSIS
     Dosage: UNKNOWN

REACTIONS (2)
  - SEPSIS [None]
  - SUBDURAL HAEMORRHAGE [None]
